FAERS Safety Report 15791906 (Version 1)
Quarter: 2019Q1

REPORT INFORMATION
  Report Type: Other
  Country: NO (occurrence: NO)
  Receive Date: 20190106
  Receipt Date: 20190106
  Transmission Date: 20190417
  Serious: Yes (Hospitalization, Other)
  Sender: FDA-Public Use
  Company Number: NO-DEXPHARM-20180998

PATIENT
  Age: 45 Year
  Sex: Female

DRUGS (4)
  1. CHLORHEXIDINE DIGLUCONATE 2% [Suspect]
     Active Substance: CHLORHEXIDINE
     Indication: IRRIGATION THERAPY
     Route: 004
  2. 2% XYLOCAINE DENTAL WITH EPINEPHRINE 1:50,000 [Concomitant]
     Indication: DENTAL LOCAL ANAESTHESIA
     Route: 004
  3. METRONIDAZOLE. [Concomitant]
     Active Substance: METRONIDAZOLE
     Indication: ANTIBIOTIC THERAPY
  4. AMOXICILLIN. [Concomitant]
     Active Substance: AMOXICILLIN
     Indication: ANTIBIOTIC THERAPY

REACTIONS (8)
  - Paraesthesia [Unknown]
  - Pain [Unknown]
  - Burning sensation [Unknown]
  - Emotional distress [Unknown]
  - Hypoaesthesia oral [Unknown]
  - Skin fibrosis [Unknown]
  - Swelling face [Recovered/Resolved]
  - Facial asymmetry [Unknown]
